FAERS Safety Report 8992241 (Version 2)
Quarter: 2013Q1

REPORT INFORMATION
  Report Type: Spontaneous
  Country: US (occurrence: US)
  Receive Date: 20121231
  Receipt Date: 20130305
  Transmission Date: 20140127
  Serious: Yes (Hospitalization)
  Sender: FDA-Public Use
  Company Number: US-ELI_LILLY_AND_COMPANY-US201212007477

PATIENT
  Age: 79 Year
  Sex: Female
  Weight: 71.66 kg

DRUGS (1)
  1. FORTEO [Suspect]
     Dosage: 20 UG, QD
     Route: 058
     Dates: start: 20110328

REACTIONS (2)
  - Hip fracture [Unknown]
  - Fall [Unknown]
